FAERS Safety Report 20322700 (Version 1)
Quarter: 2022Q1

REPORT INFORMATION
  Report Type: Spontaneous
  Country: US (occurrence: US)
  Receive Date: 20220111
  Receipt Date: 20220111
  Transmission Date: 20220423
  Serious: No
  Sender: FDA-Public Use
  Company Number: US-BEH-2021139913

PATIENT
  Sex: Female

DRUGS (2)
  1. HIZENTRA [Suspect]
     Active Substance: HUMAN IMMUNOGLOBULIN G
     Indication: Pneumonia
     Dosage: 8 GRAM, QW
     Route: 058
     Dates: start: 202107
  2. HIZENTRA [Suspect]
     Active Substance: HUMAN IMMUNOGLOBULIN G
     Indication: Illness
     Dosage: 2 GRAM, QW
     Route: 058
     Dates: start: 202107

REACTIONS (4)
  - Ill-defined disorder [Unknown]
  - Product distribution issue [Unknown]
  - No adverse event [Unknown]
  - Off label use [Unknown]
